FAERS Safety Report 11485613 (Version 1)
Quarter: 2015Q3

REPORT INFORMATION
  Report Type: Spontaneous
  Country: US (occurrence: None)
  Receive Date: 20150909
  Receipt Date: 20150909
  Transmission Date: 20151125
  Serious: Yes (Life-Threatening, Hospitalization, Other)
  Sender: FDA-Public Use
  Company Number: None

PATIENT
  Age: 56 Year
  Sex: Female
  Weight: 68.04 kg

DRUGS (10)
  1. VERAPAMIL [Concomitant]
     Active Substance: VERAPAMIL HYDROCHLORIDE
  2. VITAMIN D3 [Concomitant]
     Active Substance: CHOLECALCIFEROL
  3. COLESTIPOL [Suspect]
     Active Substance: COLESTIPOL
     Indication: BLOOD CHOLESTEROL INCREASED
     Dosage: 2 PILLS
     Route: 048
     Dates: start: 20150713, end: 20150802
  4. ATENOLOL. [Concomitant]
     Active Substance: ATENOLOL
  5. COLESTIPOL [Suspect]
     Active Substance: COLESTIPOL
     Indication: BLOOD TRIGLYCERIDES INCREASED
     Dosage: 2 PILLS
     Route: 048
     Dates: start: 20150713, end: 20150802
  6. SERTRALINE [Concomitant]
     Active Substance: SERTRALINE HYDROCHLORIDE
  7. LOSARTAN POTASSIUM. [Concomitant]
     Active Substance: LOSARTAN POTASSIUM
  8. ALLEGRA [Concomitant]
     Active Substance: FEXOFENADINE HYDROCHLORIDE
  9. FENOFIBRATE. [Concomitant]
     Active Substance: FENOFIBRATE
  10. BAYER [Concomitant]
     Active Substance: ASPIRIN

REACTIONS (10)
  - Blood triglycerides increased [None]
  - Blood cholesterol increased [None]
  - Constipation [None]
  - Pancreatitis acute [None]
  - Fatigue [None]
  - Atelectasis [None]
  - Blood potassium decreased [None]
  - Dizziness [None]
  - Dyspnoea [None]
  - Pulmonary oedema [None]

NARRATIVE: CASE EVENT DATE: 20150803
